FAERS Safety Report 21207995 (Version 3)
Quarter: 2025Q2

REPORT INFORMATION
  Report Type: Spontaneous
  Country: BR (occurrence: BR)
  Receive Date: 20220812
  Receipt Date: 20250618
  Transmission Date: 20250716
  Serious: Yes (Death, Other)
  Sender: ORGANON
  Company Number: BR-ORGANON-O2208BRA001000

PATIENT
  Age: 41 Year
  Sex: Female

DRUGS (5)
  1. MIRTAZAPINE [Suspect]
     Active Substance: MIRTAZAPINE
     Route: 048
  2. ZOLPIDEM [Suspect]
     Active Substance: ZOLPIDEM TARTRATE
  3. QUETIAPINE [Suspect]
     Active Substance: QUETIAPINE
  4. BUPRENORPHINE [Suspect]
     Active Substance: BUPRENORPHINE
  5. CLONAZEPAM [Suspect]
     Active Substance: CLONAZEPAM

REACTIONS (4)
  - Poisoning [Fatal]
  - Asphyxia [Fatal]
  - Hanging [Fatal]
  - Choking [Unknown]
